FAERS Safety Report 4932584-9 (Version None)
Quarter: 2006Q1

REPORT INFORMATION
  Report Type: 
  Country: None (occurrence: None)
  Receive Date: 20060301
  Receipt Date: 20060215
  Transmission Date: 20060701
  Serious: Yes (Hospitalization)
  Sender: FDA-Public Use
  Company Number: 222343

PATIENT
  Age: 51 Year
  Sex: Female

DRUGS (6)
  1. HERCEPTIN [Suspect]
     Indication: BREAST CANCER
     Dosage: 8 MG/KG, INTRAVENOUS
     Route: 042
     Dates: start: 20060131
  2. DOCETAXEL(DOCETAXEL) [Suspect]
     Indication: BREAST CANCER
     Dosage: 75 MG/M2, INTRAVENOUS
     Route: 042
     Dates: start: 20060201
  3. CARBOPLATIN [Suspect]
     Indication: BREAST CANCER
     Dosage: Q3W, INTRAVENOUS
     Route: 042
     Dates: start: 20060201
  4. FLUOROURACIL [Suspect]
     Indication: BREAST CANCER
     Dosage: 500 MG/M2,Q3W, INTRAVENOUS
     Route: 042
     Dates: start: 20051109
  5. EPIRUBICIN [Suspect]
     Indication: BREAST CANCER
     Dosage: 100 MG/M2, Q3W, INTRAVENOUS
     Route: 042
     Dates: start: 20051109
  6. CYCLOPHOSPHAMIDE [Suspect]
     Indication: BREAST CANCER
     Dosage: 500 MG/M2, Q3W, INTRAVENOUS
     Route: 042
     Dates: start: 20051109

REACTIONS (3)
  - CAECITIS [None]
  - DIZZINESS [None]
  - NEUTROPENIA [None]
